FAERS Safety Report 8081262-9 (Version None)
Quarter: 2012Q1

REPORT INFORMATION
  Report Type: 
  Country: None (occurrence: None)
  Receive Date: 20120130
  Receipt Date: 20120118
  Transmission Date: 20120608
  Serious: Yes (Hospitalization)
  Sender: FDA-Public Use
  Company Number: JP-SANOFI-AVENTIS-2011SA050275

PATIENT
  Age: 67 Year
  Sex: Male
  Weight: 49.6 kg

DRUGS (7)
  1. RHYTHMY [Concomitant]
     Indication: INSOMNIA
     Route: 048
  2. PLAVIX [Suspect]
     Route: 065
     Dates: start: 20100417
  3. WARFARIN SODIUM [Concomitant]
     Indication: ANGINA UNSTABLE
     Route: 048
     Dates: start: 20100416
  4. ASPIRIN [Concomitant]
     Indication: ANGINA UNSTABLE
     Route: 048
  5. RIZE [Concomitant]
     Indication: INSOMNIA
     Route: 048
  6. PLAVIX [Suspect]
     Route: 065
     Dates: start: 20100416
  7. FAMOTIDINE [Concomitant]
     Route: 048

REACTIONS (2)
  - ROTATOR CUFF SYNDROME [None]
  - EPILEPSY [None]
